FAERS Safety Report 9626238 (Version 3)
Quarter: 2013Q4

REPORT INFORMATION
  Report Type: Spontaneous
  Country: US (occurrence: None)
  Receive Date: 20131007
  Receipt Date: 20131209
  Transmission Date: 20140711
  Serious: Yes (Other)
  Sender: FDA-Public Use
  Company Number: US-145482

PATIENT
  Age: 25 Year
  Sex: Female
  Weight: 122 kg

DRUGS (3)
  1. WINRHO SDF LIQUID [Suspect]
     Indication: IMMUNE THROMBOCYTOPENIC PURPURA
     Route: 042
     Dates: start: 20130103, end: 20130103
  2. SOLUCORTEF [Concomitant]
  3. ACETAMINOPHEN [Concomitant]

REACTIONS (19)
  - Back pain [None]
  - Blood urine present [None]
  - Haemoglobin decreased [None]
  - Nausea [None]
  - Haemolysis [None]
  - Blood glucose increased [None]
  - Glucose urine present [None]
  - Platelet count increased [None]
  - Urine ketone body present [None]
  - Bacterial test positive [None]
  - Urine leukocyte esterase positive [None]
  - Protein urine present [None]
  - Chromaturia [None]
  - Headache [None]
  - Dizziness [None]
  - Heart rate increased [None]
  - White blood cell count decreased [None]
  - Hyperglycaemia [None]
  - Dizziness [None]
